FAERS Safety Report 25922600 (Version 1)
Quarter: 2025Q4

REPORT INFORMATION
  Report Type: Spontaneous
  Country: CN (occurrence: CN)
  Receive Date: 20251015
  Receipt Date: 20251015
  Transmission Date: 20260118
  Serious: Yes (Hospitalization, Other)
  Sender: QILU PHARMACEUTICAL (HAINAN) CO., LTD.
  Company Number: CN-QILU PHARMACEUTICAL (HAINAN) CO.  LTD.-QLH-000324-2025

PATIENT
  Age: 47 Year
  Sex: Female

DRUGS (5)
  1. OXALIPLATIN [Suspect]
     Active Substance: OXALIPLATIN
     Indication: Gastric cancer
     Dosage: 236 MG
     Route: 042
     Dates: start: 20240407
  2. OXALIPLATIN [Suspect]
     Active Substance: OXALIPLATIN
     Dosage: 200 MG
     Route: 065
  3. TS-1 [Suspect]
     Active Substance: GIMERACIL\OTERACIL POTASSIUM\TEGAFUR
     Indication: Gastric cancer
     Dosage: 2 CAPSULES TWICE DAILY
     Route: 048
     Dates: start: 20240407, end: 2024
  4. DEXTROSE [Concomitant]
     Active Substance: DEXTROSE MONOHYDRATE
     Dosage: UNK
     Route: 065
     Dates: start: 2024
  5. SINTILIMAB [Concomitant]
     Active Substance: SINTILIMAB
     Indication: Product used for unknown indication
     Dosage: UNK
     Route: 065
     Dates: start: 20241127

REACTIONS (5)
  - Cataract [Recovered/Resolved with Sequelae]
  - Serous retinal detachment [Not Recovered/Not Resolved]
  - Anterior chamber inflammation [Unknown]
  - Iris cyst [Recovering/Resolving]
  - Off label use [Not Recovered/Not Resolved]

NARRATIVE: CASE EVENT DATE: 20240101
